FAERS Safety Report 9229230 (Version 1)
Quarter: 2013Q2

REPORT INFORMATION
  Report Type: Spontaneous
  Country: US (occurrence: US)
  Receive Date: 20130412
  Receipt Date: 20130412
  Transmission Date: 20140414
  Serious: Yes (Other)
  Sender: FDA-Public Use
  Company Number: US-ASTELLAS-2012US011309

PATIENT
  Sex: Female

DRUGS (1)
  1. PROGRAF [Suspect]
     Indication: RENAL TRANSPLANT
     Dosage: 5 MG EVERY MORNING/4 MG EVERY EVENING
     Route: 048

REACTIONS (3)
  - Pruritus [Unknown]
  - Tremor [Unknown]
  - Vomiting [Unknown]
